FAERS Safety Report 6779392-4 (Version None)
Quarter: 2010Q2

REPORT INFORMATION
  Report Type: 
  Country: None (occurrence: None)
  Receive Date: 20100618
  Receipt Date: 20100610
  Transmission Date: 20101027
  Serious: Yes (Hospitalization, Other)
  Sender: FDA-Public Use
  Company Number: PHHO2010NL08147

PATIENT
  Sex: Female

DRUGS (2)
  1. CGS 20267 T30748+TAB [Suspect]
     Indication: BREAST CANCER
     Dosage: 2.5 MG, UNK
     Route: 048
     Dates: start: 20081120, end: 20100518
  2. COVERSYL [Concomitant]

REACTIONS (6)
  - ACUTE CORONARY SYNDROME [None]
  - ATRIAL FIBRILLATION [None]
  - COLITIS ULCERATIVE [None]
  - COLONOSCOPY [None]
  - DIARRHOEA [None]
  - WEIGHT DECREASED [None]
